FAERS Safety Report 13594548 (Version 2)
Quarter: 2017Q2

REPORT INFORMATION
  Report Type: Spontaneous
  Country: US (occurrence: US)
  Receive Date: 20170530
  Receipt Date: 20170602
  Transmission Date: 20170830
  Serious: Yes (Death, Hospitalization)
  Sender: FDA-Public Use
  Company Number: US-CELGENEUS-USA-20170509254

PATIENT
  Age: 74 Year
  Sex: Male

DRUGS (1)
  1. REVLIMID [Suspect]
     Active Substance: LENALIDOMIDE
     Indication: PLASMA CELL MYELOMA
     Dosage: 10 MILLIGRAM
     Route: 048
     Dates: start: 20141008, end: 20150123

REACTIONS (8)
  - Septic shock [Unknown]
  - Pneumonia [Unknown]
  - Death [Fatal]
  - Rhabdomyolysis [Unknown]
  - Somnolence [Unknown]
  - Fall [Unknown]
  - Clostridium difficile infection [Unknown]
  - Encephalopathy [Unknown]

NARRATIVE: CASE EVENT DATE: 201501
